FAERS Safety Report 7488933-3 (Version None)
Quarter: 2011Q1

REPORT INFORMATION
  Report Type: 
  Country: None (occurrence: None)
  Receive Date: 20110315
  Receipt Date: 20101202
  Transmission Date: 20110831
  Serious: Yes (Other)
  Sender: FDA-Public Use
  Company Number: DSA_44175_2010

PATIENT
  Sex: Female

DRUGS (10)
  1. LAMICTAL [Concomitant]
  2. LISINOPRIL [Concomitant]
  3. LITHIUM CARBONATE [Concomitant]
  4. PRILOSEC [Concomitant]
  5. XENAZINE [Suspect]
     Indication: TARDIVE DYSKINESIA
     Dosage: (12.5 MG BID ORAL), (12.5 MG QD ORAL)
     Route: 048
  6. PROPRANOLOL [Concomitant]
  7. SEROQUEL [Concomitant]
  8. KLONOPIN [Concomitant]
  9. DETROL LA [Concomitant]
  10. MIRALAX [Concomitant]

REACTIONS (3)
  - DEPRESSION [None]
  - DIZZINESS [None]
  - ANXIETY [None]
